FAERS Safety Report 18202866 (Version 3)
Quarter: 2020Q3

REPORT INFORMATION
  Report Type: Spontaneous
  Country: PL (occurrence: PL)
  Receive Date: 20200827
  Receipt Date: 20200918
  Transmission Date: 20201103
  Serious: Yes (Life-Threatening, Hospitalization, Other)
  Sender: FDA-Public Use
  Company Number: PL-ASTRAZENECA-2020SF07391

PATIENT
  Age: 72 Year
  Sex: Female
  Weight: 80 kg

DRUGS (7)
  1. ATORIS [Suspect]
     Active Substance: ATORVASTATIN CALCIUM
     Indication: PRODUCT USED FOR UNKNOWN INDICATION
     Dosage: 20.0MG ONCE/SINGLE ADMINISTRATION
     Route: 048
     Dates: start: 20200716
  2. AMLOZEK [Suspect]
     Active Substance: AMLODIPINE BESYLATE
     Dosage: UNK, ONCE/SINGLE ADMINISTRATION
     Route: 048
     Dates: start: 20200716
  3. DIUVE [Suspect]
     Active Substance: TORSEMIDE
     Dosage: DOSE UNK, ONCE/SINGLE ADMINISTRATION
     Route: 065
     Dates: start: 20200716
  4. KETILEPT [Suspect]
     Active Substance: QUETIAPINE FUMARATE
     Dosage: 100 MG, TOTAL
     Route: 048
     Dates: start: 20200716
  5. ACARD [Suspect]
     Active Substance: ASPIRIN
     Dosage: 75.0MG ONCE/SINGLE ADMINISTRATION
     Route: 065
     Dates: start: 20200716
  6. LOKREN [Suspect]
     Active Substance: BETAXOLOL HYDROCHLORIDE
     Dosage: ONCE/SINGLE ADMINISTRATION
     Route: 065
     Dates: start: 20200716
  7. POLSART [Suspect]
     Active Substance: TELMISARTAN
     Dosage: UNK UNK, TOTAL, ONCE/SINGLE ADMINISTRATION
     Route: 065
     Dates: start: 20200716

REACTIONS (5)
  - Intentional product misuse [Unknown]
  - Bradycardia [Not Recovered/Not Resolved]
  - Suicide attempt [Unknown]
  - Atrioventricular block [Not Recovered/Not Resolved]
  - Conduction disorder [Unknown]

NARRATIVE: CASE EVENT DATE: 20200716
